FAERS Safety Report 19953545 (Version 1)
Quarter: 2021Q4

REPORT INFORMATION
  Report Type: Spontaneous
  Country: US (occurrence: US)
  Receive Date: 20211011
  Receipt Date: 20211011
  Transmission Date: 20220303
  Serious: No
  Sender: FDA-Public Use
  Company Number: None

PATIENT
  Age: 43 Year
  Sex: Female

DRUGS (1)
  1. HUMIRA [Suspect]
     Active Substance: ADALIMUMAB
     Indication: Psoriasis
     Dosage: INJECT 80MG (2 SYRINGES) SUBCUTANEOUSLY  ON DAY 1, 40MG (1 SYRINGE) ON DAY 8, THEN 40MG EVERY OTHER
     Route: 058
     Dates: start: 202103

REACTIONS (2)
  - Nasopharyngitis [None]
  - Therapy interrupted [None]
